FAERS Safety Report 4883271-7 (Version None)
Quarter: 2006Q1

REPORT INFORMATION
  Report Type: 
  Country: None (occurrence: None)
  Receive Date: 20060117
  Receipt Date: 20060117
  Transmission Date: 20060701
  Serious: Yes (Hospitalization)
  Sender: FDA-Public Use
  Company Number: None

PATIENT
  Age: 60 Year
  Sex: Male
  Weight: 91.4 kg

DRUGS (1)
  1. ABACAVIR [Suspect]
     Indication: HIV INFECTION
     Dosage: 600MG QD PO
     Route: 048
     Dates: start: 20051219, end: 20051225

REACTIONS (2)
  - BODY TEMPERATURE INCREASED [None]
  - CHILLS [None]
